FAERS Safety Report 9165941 (Version 1)
Quarter: 2013Q1

REPORT INFORMATION
  Report Type: Report from Study
  Country: US (occurrence: US)
  Receive Date: 20130315
  Receipt Date: 20130315
  Transmission Date: 20140127
  Serious: Yes (Hospitalization, Other)
  Sender: FDA-Public Use
  Company Number: US-ABBOTT-13P-163-1049478-00

PATIENT
  Sex: Female

DRUGS (9)
  1. HUMIRA [Suspect]
     Indication: CROHN^S DISEASE
     Dates: start: 20121015
  2. OMEPRAZOLE [Suspect]
     Indication: GASTROOESOPHAGEAL REFLUX DISEASE
     Dosage: IN THE MORNING
  3. METHOTREXATE [Concomitant]
     Indication: RHEUMATOID ARTHRITIS
  4. FOLIC ACID [Concomitant]
     Indication: CROHN^S DISEASE
  5. BENAZEPRIL/HCTZ [Concomitant]
     Indication: HYPERTENSION
     Dosage: 20/12.5MG DAILY
  6. AMITRIPTYLINE [Concomitant]
     Indication: PRODUCT USED FOR UNKNOWN INDICATION
     Dosage: AT BEDTIME
  7. METOPROLOL [Concomitant]
     Indication: HYPERTENSION
  8. ASA [Concomitant]
     Indication: PRODUCT USED FOR UNKNOWN INDICATION
  9. BENAZEPRIL [Concomitant]
     Indication: HYPERTENSION

REACTIONS (6)
  - Blood potassium decreased [Recovering/Resolving]
  - Blood magnesium decreased [Recovering/Resolving]
  - Blood calcium decreased [Recovering/Resolving]
  - Local swelling [Recovering/Resolving]
  - Diarrhoea [Recovering/Resolving]
  - Nutritional condition abnormal [Recovering/Resolving]
